FAERS Safety Report 7409328-4 (Version None)
Quarter: 2011Q2

REPORT INFORMATION
  Report Type: 
  Country: None (occurrence: None)
  Receive Date: 20110412
  Receipt Date: 20110329
  Transmission Date: 20111010
  Serious: Yes (Death, Hospitalization, Other)
  Sender: FDA-Public Use
  Company Number: KR-PAR PHARMACEUTICAL, INC-2011SCPR002829

PATIENT
  Age: 71 Year
  Sex: Male

DRUGS (2)
  1. METRONIDAZOLE [Suspect]
     Dosage: UNK, UNKNOWN
     Route: 048
  2. METRONIDAZOLE [Suspect]
     Indication: ENTEROCOLITIS INFECTIOUS
     Dosage: UNK, UNKNOWN
     Route: 042

REACTIONS (2)
  - CEREBELLAR SYNDROME [None]
  - TOXIC ENCEPHALOPATHY [None]
